FAERS Safety Report 7357682-4 (Version None)
Quarter: 2011Q1

REPORT INFORMATION
  Report Type: 
  Country: None (occurrence: None)
  Receive Date: 20110309
  Receipt Date: 20110228
  Transmission Date: 20110831
  Serious: Yes (Hospitalization)
  Sender: FDA-Public Use
  Company Number: 1000017543

PATIENT
  Age: 65 Year
  Sex: Female

DRUGS (5)
  1. NEBIVOLOL (NEBIVOLOL HYDROCHLORIDE) [Suspect]
     Dosage: 5 MG (5 MG, 1 IN 1 D), ORAL
     Route: 048
  2. COVERSYL (PERINDOPRIL) [Suspect]
  3. ISPAGHULA HUSK (PLANTAGO OVATA HUSK) [Suspect]
  4. OMESAR (OLMESARTAN MEDOXOMIL) [Suspect]
     Dosage: 20 MG (20 MG, 1 IN 1 D), ORAL
     Route: 048
  5. ESOMEPRAZOLE (ESOMEPRAZOLE) [Suspect]
     Dosage: 20 MG (20 MG, 1 IN 1 D)

REACTIONS (5)
  - MALAISE [None]
  - NAUSEA [None]
  - DECREASED APPETITE [None]
  - GASTRITIS [None]
  - ABDOMINAL PAIN UPPER [None]
